FAERS Safety Report 8809617 (Version 1)
Quarter: 2012Q4

REPORT INFORMATION
  Report Type: 
  Country: US (occurrence: US)
  Receive Date: 20120926
  Receipt Date: 20120926
  Transmission Date: 20130627
  Serious: Yes (Hospitalization)
  Sender: FDA-Public Use
  Company Number: US-ARROW-2012-16215

PATIENT
  Age: 70 Year
  Sex: Female

DRUGS (7)
  1. CARBOPLATIN [Suspect]
     Indication: OVARIAN CANCER
     Dosage: UNK
     Route: 065
  2. GEMCITABINE [Suspect]
     Indication: OVARIAN CANCER
     Dosage: UNK
     Route: 065
  3. PACLITAXEL [Suspect]
     Indication: OVARIAN CANCER
     Route: 065
  4. FARLETUZUMAB [Suspect]
     Indication: OVARIAN CANCER
     Route: 065
  5. DOXORUBICIN [Suspect]
     Indication: OVARIAN CANCER
     Dosage: UNK
     Route: 065
  6. TOPOTECAN [Suspect]
     Indication: OVARIAN CANCER
     Route: 065
  7. PEMETREXED [Suspect]
     Indication: OVARIAN CANCER
     Route: 065

REACTIONS (1)
  - Posterior reversible encephalopathy syndrome [Recovering/Resolving]
